FAERS Safety Report 5974126-5 (Version None)
Quarter: 2008Q4

REPORT INFORMATION
  Report Type: 
  Country: None (occurrence: None)
  Receive Date: 20081201
  Receipt Date: 20081120
  Transmission Date: 20090506
  Serious: Yes (Life-Threatening, Other)
  Sender: FDA-Public Use
  Company Number: JP-PFIZER INC-2008078874

PATIENT
  Sex: Male
  Weight: 65 kg

DRUGS (13)
  1. GABAPEN [Suspect]
     Indication: DIABETIC NEUROPATHY
     Route: 048
     Dates: start: 20080828, end: 20080907
  2. DRUG, UNSPECIFIED [Concomitant]
  3. INFREE S [Concomitant]
     Route: 048
  4. ALLOPURINOL [Concomitant]
     Route: 048
  5. TAKEPRON [Concomitant]
     Route: 048
  6. NEUZYM [Concomitant]
     Route: 048
  7. MUCODYNE [Concomitant]
     Route: 048
  8. ALINAMIN F [Concomitant]
     Route: 048
  9. MYSLEE [Concomitant]
     Route: 048
  10. VALSARTAN [Concomitant]
     Route: 048
  11. ADALAT CC [Concomitant]
     Route: 048
  12. PRORENAL [Concomitant]
     Route: 048
  13. DIAZEPAM [Concomitant]
     Route: 048

REACTIONS (1)
  - HYPERKALAEMIA [None]
